FAERS Safety Report 17649050 (Version 7)
Quarter: 2021Q4

REPORT INFORMATION
  Report Type: Spontaneous
  Country: US (occurrence: US)
  Receive Date: 20200408
  Receipt Date: 20211020
  Transmission Date: 20220304
  Serious: Yes (Other)
  Sender: FDA-Public Use
  Company Number: US-PFIZER INC-2019287703

PATIENT
  Age: 69 Year
  Sex: Female
  Weight: 88 kg

DRUGS (4)
  1. LYRICA [Suspect]
     Active Substance: PREGABALIN
     Indication: Pain
     Dosage: 75 MG, 3X/DAY
     Route: 048
     Dates: start: 201905, end: 2019
  2. LYRICA [Suspect]
     Active Substance: PREGABALIN
     Indication: Intervertebral disc degeneration
     Dosage: 100 MG, 2X/DAY
     Route: 048
  3. LYRICA [Suspect]
     Active Substance: PREGABALIN
     Indication: Neuralgia
     Dosage: 2 DF, 1X/DAY (CUT DOWN THE DOSE TO 2 CAPSULES A DAY)
     Route: 048
  4. LYRICA [Suspect]
     Active Substance: PREGABALIN
     Indication: Nerve injury
     Dosage: 75 MG, 3X/DAY
     Route: 048

REACTIONS (14)
  - Mental impairment [Unknown]
  - Intentional product use issue [Unknown]
  - Feeling abnormal [Unknown]
  - Throat tightness [Unknown]
  - Dyspnoea [Unknown]
  - Cough [Unknown]
  - Malaise [Not Recovered/Not Resolved]
  - Anxiety [Unknown]
  - Confusional state [Unknown]
  - Disturbance in attention [Unknown]
  - Formication [Unknown]
  - Mobility decreased [Unknown]
  - Muscle spasms [Unknown]
  - Off label use [Unknown]

NARRATIVE: CASE EVENT DATE: 20190101
